FAERS Safety Report 4293772-0 (Version None)
Quarter: 2004Q1

REPORT INFORMATION
  Report Type: 
  Country: None (occurrence: None)
  Receive Date: 20040210
  Receipt Date: 20040128
  Transmission Date: 20041129
  Serious: Yes (Other)
  Sender: FDA-Public Use
  Company Number: 2004006546

PATIENT
  Sex: Male

DRUGS (3)
  1. SILDENAFIL (SILDENAFIL) [Suspect]
     Indication: ILL-DEFINED DISORDER
     Dosage: ORAL
     Route: 048
  2. ETHANOL (ETHANOL) [Suspect]
     Indication: ILL-DEFINED DISORDER
     Dosage: ORAL
     Route: 048
  3. ALPHA-ADRENOCEPTOR BLOCKING AGENTS [Suspect]
     Indication: ILL-DEFINED DISORDER

REACTIONS (4)
  - ALCOHOL USE [None]
  - DEHYDRATION [None]
  - HYPOTENSION [None]
  - LOSS OF CONSCIOUSNESS [None]
